FAERS Safety Report 8204877-3 (Version None)
Quarter: 2012Q1

REPORT INFORMATION
  Report Type: 
  Country: None (occurrence: None)
  Receive Date: 20120309
  Receipt Date: 20120224
  Transmission Date: 20120608
  Serious: Yes (Other)
  Sender: FDA-Public Use
  Company Number: 1211046

PATIENT
  Age: 55 Year
  Sex: Female

DRUGS (6)
  1. POLARAMINE [Concomitant]
  2. FLUOROURACIL [Concomitant]
  3. LEVOLEUCOVORIN CALCIUM [Concomitant]
  4. OXALIPLATIN [Suspect]
     Indication: NEOPLASM MALIGNANT
     Dosage: 130 MG MILLIGRAM(S), 2 WEEK, INTRAVENOUS (NOT OTHERWISE SPECIFIED)
     Route: 042
     Dates: start: 20110722, end: 20110902
  5. ONDANSETRON [Concomitant]
  6. METHYLPREDNISOLONE [Concomitant]

REACTIONS (4)
  - MALAISE [None]
  - DYSPNOEA [None]
  - OXYGEN SATURATION DECREASED [None]
  - ERYTHEMA [None]
